FAERS Safety Report 8021800-5 (Version None)
Quarter: 2011Q4

REPORT INFORMATION
  Report Type: 
  Country: None (occurrence: None)
  Receive Date: 20111229
  Receipt Date: 20111220
  Transmission Date: 20120403
  Serious: Yes (Hospitalization, Disabling)
  Sender: FDA-Public Use
  Company Number: 2011MA016666

PATIENT
  Age: 65 Year
  Sex: Male

DRUGS (9)
  1. ORAMORPH SR [Suspect]
     Dosage: 15 MG; TID
  2. METOCLOPRAMIDE [Concomitant]
  3. ROPINIROLE [Concomitant]
  4. FLUOXETINE [Concomitant]
  5. LYRICA [Suspect]
     Indication: ABDOMINAL PAIN
     Dosage: 300 MG; BID
  6. FEVERALL [Suspect]
     Dosage: 1 G; TID
  7. TRAMADOL HCL [Suspect]
     Dosage: 100 MG; TID
  8. FENTANYL-100 [Suspect]
     Dosage: 1 DF; TIW
  9. NALOXONE HCL [Suspect]
     Dosage: 5 MG; TID

REACTIONS (6)
  - MUSCULOSKELETAL STIFFNESS [None]
  - CARDIO-RESPIRATORY ARREST [None]
  - MUSCLE SPASMS [None]
  - ABDOMINAL PAIN [None]
  - PAIN IN EXTREMITY [None]
  - BACK PAIN [None]
